FAERS Safety Report 20351819 (Version 1)
Quarter: 2022Q1

REPORT INFORMATION
  Report Type: Spontaneous
  Country: ID (occurrence: ID)
  Receive Date: 20220119
  Receipt Date: 20220119
  Transmission Date: 20220423
  Serious: Yes (Life-Threatening, Hospitalization)
  Sender: FDA-Public Use
  Company Number: ID-LUPIN PHARMACEUTICALS INC.-2022-00489

PATIENT
  Age: 49 Year
  Sex: Male

DRUGS (23)
  1. METRONIDAZOLE [Suspect]
     Active Substance: METRONIDAZOLE
     Indication: Liver abscess
     Dosage: UNK
     Route: 065
  2. METRONIDAZOLE [Suspect]
     Active Substance: METRONIDAZOLE
     Indication: Pseudomonas infection
  3. MOXIFLOXACIN [Suspect]
     Active Substance: MOXIFLOXACIN
     Indication: Liver abscess
     Route: 065
  4. MOXIFLOXACIN [Suspect]
     Active Substance: MOXIFLOXACIN
     Indication: Pseudomonas infection
  5. AZITHROMYCIN [Suspect]
     Active Substance: AZITHROMYCIN
     Indication: COVID-19
     Dosage: UNK
     Route: 065
  6. HYDROXYCHLOROQUINE [Suspect]
     Active Substance: HYDROXYCHLOROQUINE
     Indication: COVID-19
     Dosage: UNK
     Route: 065
  7. LEVOFLOXACIN [Suspect]
     Active Substance: LEVOFLOXACIN
     Indication: COVID-19
     Dosage: UNK
     Route: 065
  8. CEFOTAXIME [Suspect]
     Active Substance: CEFOTAXIME SODIUM
     Indication: Liver abscess
     Dosage: UNK
     Route: 065
  9. CEFOTAXIME [Suspect]
     Active Substance: CEFOTAXIME SODIUM
     Indication: Pseudomonas infection
  10. CEFOPERAZONE\SULBACTAM [Suspect]
     Active Substance: CEFOPERAZONE\SULBACTAM
     Indication: Pseudomonas infection
     Dosage: UNK
     Route: 065
  11. CEFOPERAZONE\SULBACTAM [Suspect]
     Active Substance: CEFOPERAZONE\SULBACTAM
     Indication: Liver abscess
  12. MEROPENEM [Suspect]
     Active Substance: MEROPENEM
     Indication: Liver abscess
     Dosage: UNK
     Route: 065
  13. MEROPENEM [Suspect]
     Active Substance: MEROPENEM
     Indication: Pseudomonas infection
  14. MICAFUNGIN [Suspect]
     Active Substance: MICAFUNGIN
     Indication: Pseudomonas infection
     Dosage: UNK
     Route: 065
  15. MICAFUNGIN [Suspect]
     Active Substance: MICAFUNGIN
     Indication: Liver abscess
  16. TOCILIZUMAB [Suspect]
     Active Substance: TOCILIZUMAB
     Indication: COVID-19
     Dosage: UNK
     Route: 065
  17. AMIKACIN [Concomitant]
     Active Substance: AMIKACIN
     Indication: Evidence based treatment
     Dosage: UNK
     Route: 065
  18. IMIPENEM AND CILASTATIN [Concomitant]
     Active Substance: CILASTATIN SODIUM\IMIPENEM
     Indication: Evidence based treatment
     Dosage: UNK
     Route: 065
  19. ENOXAPARIN [Concomitant]
     Active Substance: ENOXAPARIN
     Indication: Evidence based treatment
     Dosage: UNK
     Route: 065
  20. TRANEXAMIC ACID [Concomitant]
     Active Substance: TRANEXAMIC ACID
     Indication: Liver abscess
     Dosage: UNK
     Route: 065
  21. FRESH FROZEN PLASMA [Concomitant]
     Active Substance: HUMAN PLASMA
     Indication: Liver abscess
     Dosage: UNK (4 UNITS TRANSFUSED)
     Route: 065
  22. PANTOPRAZOLE [Concomitant]
     Active Substance: PANTOPRAZOLE
     Indication: Product used for unknown indication
     Dosage: UNK
     Route: 065
  23. ACETAMINOPHEN [Concomitant]
     Active Substance: ACETAMINOPHEN
     Indication: Product used for unknown indication
     Dosage: UNK
     Route: 065

REACTIONS (2)
  - Drug ineffective for unapproved indication [Unknown]
  - Off label use [Unknown]
